FAERS Safety Report 5082701-8 (Version None)
Quarter: 2006Q3

REPORT INFORMATION
  Report Type: 
  Country: None (occurrence: None)
  Receive Date: 20060816
  Receipt Date: 20060816
  Transmission Date: 20061208
  Serious: Yes (Hospitalization)
  Sender: FDA-Public Use
  Company Number: None

PATIENT
  Age: 41 Year
  Sex: Male
  Weight: 71 kg

DRUGS (1)
  1. CARBAMAZEPINE [Suspect]
     Indication: AFFECTIVE DISORDER
     Dosage: 300MG  BID  PO
     Route: 048

REACTIONS (1)
  - PANCREATITIS ACUTE [None]
